FAERS Safety Report 21723989 (Version 5)
Quarter: 2023Q1

REPORT INFORMATION
  Report Type: Spontaneous
  Country: CN (occurrence: CN)
  Receive Date: 20221213
  Receipt Date: 20230313
  Transmission Date: 20230417
  Serious: Yes (Death, Hospitalization, Other)
  Sender: FDA-Public Use
  Company Number: CN-009507513-2212CHN004230

PATIENT
  Age: 65 Year
  Sex: Male

DRUGS (6)
  1. KEYTRUDA [Suspect]
     Active Substance: PEMBROLIZUMAB
     Indication: Oesophageal squamous cell carcinoma
     Dosage: 200 MILLIGRAM, ONCE
     Route: 041
     Dates: start: 20221104, end: 20221104
  2. HERBALS [Suspect]
     Active Substance: HERBALS
     Dosage: 300 MG, QD
     Route: 048
     Dates: end: 20221118
  3. VALSARTAN [Concomitant]
     Active Substance: VALSARTAN
  4. METFORMIN HYDROCHLORIDE [Concomitant]
     Active Substance: METFORMIN HYDROCHLORIDE
  5. BAI LING [CORDYCEPS SINENSIS MYCELIUM] [Concomitant]
  6. SHEN SHUAI NING [Concomitant]

REACTIONS (4)
  - Renal failure [Fatal]
  - Mental disorder [Unknown]
  - Decreased appetite [Not Recovered/Not Resolved]
  - Decreased appetite [Recovered/Resolved]

NARRATIVE: CASE EVENT DATE: 20220101
